FAERS Safety Report 5580323-3 (Version None)
Quarter: 2007Q4

REPORT INFORMATION
  Report Type: 
  Country: None (occurrence: None)
  Receive Date: 20071130
  Receipt Date: 20070711
  Transmission Date: 20080405
  Serious: No
  Sender: FDA-Public Use
  Company Number: US200707002995

PATIENT
  Age: 60 Year
  Sex: Female
  Weight: 97.5 kg

DRUGS (11)
  1. BYETTA [Suspect]
     Indication: TYPE 2 DIABETES MELLITUS
     Dosage: 5 UG, 2/D, SUBCUTANEOUS ; 10 UG, 2/D, SUBCUTANEOUS
     Route: 058
     Dates: start: 20070501, end: 20070601
  2. BYETTA [Suspect]
     Indication: TYPE 2 DIABETES MELLITUS
     Dosage: 5 UG, 2/D, SUBCUTANEOUS ; 10 UG, 2/D, SUBCUTANEOUS
     Route: 058
     Dates: start: 20070601
  3. LANTUS [Concomitant]
  4. HUMALOG [Concomitant]
  5. LIPITOR [Concomitant]
  6. LASIX [Concomitant]
  7. TRICOR [Concomitant]
  8. TOPROL-XL [Concomitant]
  9. AMITRIPTYLINE HCL [Concomitant]
  10. BENICAR [Concomitant]
  11. POTASSIUM (POTASSIUM) [Concomitant]

REACTIONS (5)
  - CELLULITIS [None]
  - OEDEMA PERIPHERAL [None]
  - PAIN IN EXTREMITY [None]
  - RASH MACULAR [None]
  - SKIN DISCOLOURATION [None]
